FAERS Safety Report 6710254-4 (Version None)
Quarter: 2010Q2

REPORT INFORMATION
  Report Type: 
  Country: None (occurrence: None)
  Receive Date: 20100430
  Receipt Date: 20100416
  Transmission Date: 20101027
  Serious: Yes (Other)
  Sender: FDA-Public Use
  Company Number: 010682

PATIENT
  Age: 38 Year
  Sex: Female

DRUGS (3)
  1. VIMPAT [Suspect]
     Indication: PARTIAL SEIZURES
     Dosage: (MAXIMUM DOSE: 200 MG; INCREASE OF 50 MG/WEEK.)
     Dates: start: 20090507, end: 20091001
  2. LEVETIRACETAM [Concomitant]
  3. OXCARBAZEPINE [Concomitant]

REACTIONS (2)
  - DIPLOPIA [None]
  - HOT FLUSH [None]
